FAERS Safety Report 7628509-8 (Version None)
Quarter: 2011Q3

REPORT INFORMATION
  Report Type: 
  Country: None (occurrence: None)
  Receive Date: 20110722
  Receipt Date: 20110719
  Transmission Date: 20111222
  Serious: Yes (Life-Threatening, Hospitalization, Other)
  Sender: FDA-Public Use
  Company Number: GR-ELI_LILLY_AND_COMPANY-GR201106006350

PATIENT
  Age: 59 Year
  Sex: Male
  Weight: 79 kg

DRUGS (9)
  1. MEDROL [Concomitant]
     Dosage: UNK, UNKNOWN
     Route: 065
  2. AMLODIPINE [Concomitant]
     Indication: HYPERTENSION
     Dosage: UNK, UNKNOWN
     Route: 065
     Dates: start: 19920101
  3. ITRACONAZOLE [Concomitant]
     Indication: ORAL CANDIDIASIS
     Dosage: UNK, UNKNOWN
     Route: 065
     Dates: start: 20110512, end: 20110522
  4. TEMSIROLIMUS [Concomitant]
     Indication: PANCREATIC CARCINOMA
     Dosage: 20 MG, WEEKLY
     Route: 042
     Dates: start: 20110110, end: 20110518
  5. MESULID [Concomitant]
     Indication: BONE PAIN
     Dosage: UNK, UNKNOWN
     Route: 065
     Dates: start: 20110414, end: 20110518
  6. GEMZAR [Suspect]
     Indication: PANCREATIC CARCINOMA
     Dosage: 1500 MG, 2/W
     Route: 042
     Dates: start: 20110110, end: 20110110
  7. LONARID [Concomitant]
     Indication: BONE PAIN
     Dosage: UNK, UNKNOWN
     Route: 065
     Dates: start: 20110222
  8. GEMZAR [Suspect]
     Dosage: UNK, UNKNOWN
  9. NORVASC [Concomitant]
     Dosage: UNK, UNKNOWN
     Route: 065
     Dates: start: 19920101, end: 20110523

REACTIONS (7)
  - HAEMORRHOIDS [None]
  - NEOPLASM PROGRESSION [None]
  - BONE PAIN [None]
  - ORAL CANDIDIASIS [None]
  - RASH [None]
  - PULMONARY EMBOLISM [None]
  - DIARRHOEA [None]
